FAERS Safety Report 8130075-8 (Version None)
Quarter: 2011Q4

REPORT INFORMATION
  Report Type: 
  Country: None (occurrence: None)
  Receive Date: 20111227
  Receipt Date: 20110916
  Transmission Date: 20120403
  Serious: No
  Sender: FDA-Public Use
  Company Number: PHEH2011US03286

PATIENT
  Age: 64 Year
  Sex: Female

DRUGS (6)
  1. NORVASC [Concomitant]
  2. QUINAPRIL HCL [Concomitant]
  3. FAMPRIDINE (FAMPRIDINE) [Suspect]
     Indication: MULTIPLE SCLEROSIS
     Dosage: 10 MG, BID, ORAL
     Route: 048
  4. TIZANIDINE HCL [Suspect]
     Dosage: 5 MG, UNK, ORAL
     Route: 048
  5. TETRACYCLINES (NO INGREDIENTS/SUBSTANCES) [Concomitant]
  6. GILENYA [Suspect]
     Dosage: 0.5 MG, QD, ORAL
     Route: 048
     Dates: start: 20110816

REACTIONS (3)
  - ERYTHEMA [None]
  - BLISTER [None]
  - PRURITUS [None]
